FAERS Safety Report 6368560-1 (Version None)
Quarter: 2009Q3

REPORT INFORMATION
  Report Type: 
  Country: None (occurrence: None)
  Receive Date: 20090922
  Receipt Date: 20081015
  Transmission Date: 20100115
  Serious: No
  Sender: FDA-Public Use
  Company Number: US-BRISTOL-MYERS SQUIBB COMPANY-14370761

PATIENT
  Age: 47 Year
  Sex: Female
  Weight: 68 kg

DRUGS (2)
  1. BUSPAR [Suspect]
     Indication: ANXIETY
     Dosage: TAKEN 1/2 TABS DOSE INCREASED TO 1 TABS AFTER 2 TO 3 WEEKS
  2. WELLBUTRIN [Concomitant]

REACTIONS (1)
  - ALOPECIA [None]
